FAERS Safety Report 8465417-7 (Version None)
Quarter: 2012Q2

REPORT INFORMATION
  Report Type: 
  Country: None (occurrence: None)
  Receive Date: 20120626
  Receipt Date: 20120618
  Transmission Date: 20120825
  Serious: Yes (Hospitalization)
  Sender: FDA-Public Use
  Company Number: US-BAYER-2012-061959

PATIENT
  Age: 23 Year
  Sex: Female

DRUGS (12)
  1. TORADOL [Concomitant]
     Indication: CHEST PAIN
  2. YAZ [Suspect]
  3. SOLU-MEDROL [Concomitant]
     Dosage: 125 MG, UNK
     Route: 042
     Dates: start: 20110118
  4. ZANTAC [Concomitant]
     Dosage: 50 MG, UNK
     Route: 042
     Dates: start: 20110118
  5. PREDNISONE [Concomitant]
     Dosage: TAPER
     Route: 048
     Dates: start: 20110118
  6. ZANTAC [Concomitant]
     Dosage: 150 MG, UNK
     Route: 048
     Dates: start: 20110118
  7. SEPTRA [Concomitant]
     Dosage: UNK
     Route: 048
     Dates: start: 20110108
  8. NORCO [Concomitant]
  9. NICOTINE [Concomitant]
  10. DROSPIRENONE AND ETHINYL ESTRADIOL [Suspect]
  11. BENADRYL [Concomitant]
     Dosage: 50 MG, UNK
     Route: 042
     Dates: start: 20110118
  12. BENADRYL [Concomitant]
     Dosage: 25 MG, UNK
     Route: 048
     Dates: start: 20110118

REACTIONS (2)
  - PULMONARY INFARCTION [None]
  - PULMONARY EMBOLISM [None]
